FAERS Safety Report 9533173 (Version 2)
Quarter: 2013Q4

REPORT INFORMATION
  Report Type: Spontaneous
  Country: US (occurrence: None)
  Receive Date: 20130916
  Receipt Date: 20131105
  Transmission Date: 20140711
  Serious: Yes (Other)
  Sender: FDA-Public Use
  Company Number: 2013-US-000613

PATIENT
  Age: 59 Year
  Sex: Male

DRUGS (2)
  1. XYREM [Suspect]
     Indication: CATAPLEXY
     Route: 048
     Dates: start: 20080806
  2. XYREM [Suspect]
     Indication: NARCOLEPSY
     Route: 048
     Dates: start: 20080806

REACTIONS (4)
  - Cerebrovascular accident [None]
  - Visual impairment [None]
  - Cardiac septal defect [None]
  - Malaise [None]
